FAERS Safety Report 16925224 (Version 3)
Quarter: 2024Q3

REPORT INFORMATION
  Report Type: Spontaneous
  Country: AT (occurrence: AT)
  Receive Date: 20191016
  Receipt Date: 20240718
  Transmission Date: 20241017
  Serious: Yes (Other)
  Sender: AMGEN
  Company Number: AT-HORIZON-PRO-0225-2019

PATIENT
  Age: 9 Year
  Sex: Female
  Weight: 25 kg

DRUGS (1)
  1. PROCYSBI [Suspect]
     Active Substance: CYSTEAMINE BITARTRATE
     Indication: Cystinosis
     Dosage: 600 MILLIGRAM, BID
     Route: 065

REACTIONS (3)
  - Large intestinal stenosis [Recovered/Resolved]
  - Fibrosing colonopathy [Recovered/Resolved]
  - Wrong technique in product usage process [Unknown]
